FAERS Safety Report 8115933-2 (Version None)
Quarter: 2012Q1

REPORT INFORMATION
  Report Type: 
  Country: None (occurrence: None)
  Receive Date: 20120206
  Receipt Date: 20120123
  Transmission Date: 20120608
  Serious: Yes (Other)
  Sender: FDA-Public Use
  Company Number: JP-ROCHE-1034222

PATIENT
  Age: 30 Year
  Sex: Male

DRUGS (2)
  1. GANCICLOVIR SODIUM [Suspect]
     Indication: PNEUMONIA CYTOMEGALOVIRAL
  2. GANCICLOVIR SODIUM [Suspect]
     Indication: CYTOMEGALOVIRUS VIRAEMIA
     Route: 042
     Dates: start: 20120112

REACTIONS (1)
  - CEREBELLAR ATAXIA [None]
